FAERS Safety Report 9587242 (Version 4)
Quarter: 2013Q4

REPORT INFORMATION
  Report Type: Report from Study
  Country: US (occurrence: US)
  Receive Date: 20131003
  Receipt Date: 20131031
  Transmission Date: 20140711
  Serious: Yes (Hospitalization)
  Sender: FDA-Public Use
  Company Number: US-B.I. PHARMACEUTICALS,INC./RIDGEFIELD-2013-BI-29198BP

PATIENT
  Age: 61 Year
  Sex: Female

DRUGS (13)
  1. GILOTRIF [Suspect]
     Indication: NON-SMALL CELL LUNG CANCER
     Dosage: 40 MG
     Route: 048
     Dates: start: 20130915, end: 20130924
  2. GILOTRIF [Suspect]
     Dosage: 40 MG
     Route: 048
     Dates: start: 20131002
  3. VAPRINO A-D [Suspect]
     Indication: DIARRHOEA
     Dosage: FORMULATION: ORAL, STRENTH: FROM KIT, DAILY DOSE: PRN
     Route: 048
  4. TRAMADOL [Concomitant]
  5. ERYTHROMYCIN [Concomitant]
  6. PCN [Concomitant]
  7. OXYCODONE [Concomitant]
  8. TYLENOL [Concomitant]
  9. IMMODIUM [Concomitant]
  10. VANICREAM [Concomitant]
  11. CLINDAMYCIN [Concomitant]
  12. AMERAGEL [Concomitant]
  13. FUNGIFOAM [Concomitant]

REACTIONS (9)
  - Diarrhoea [Recovered/Resolved]
  - Nail bed infection [Not Recovered/Not Resolved]
  - Nausea [Recovered/Resolved]
  - Vomiting [Recovered/Resolved]
  - Dry skin [Not Recovered/Not Resolved]
  - Acne [Not Recovered/Not Resolved]
  - Dry mouth [Not Recovered/Not Resolved]
  - Oral pain [Not Recovered/Not Resolved]
  - Weight decreased [Not Recovered/Not Resolved]
